FAERS Safety Report 21900931 (Version 1)
Quarter: 2023Q1

REPORT INFORMATION
  Report Type: Spontaneous
  Country: JP (occurrence: JP)
  Receive Date: 20230123
  Receipt Date: 20230123
  Transmission Date: 20230418
  Serious: Yes (Death, Hospitalization, Other)
  Sender: FDA-Public Use
  Company Number: JP-ALLERGAN-2301806US

PATIENT
  Sex: Male

DRUGS (2)
  1. SILODOSIN [Suspect]
     Active Substance: SILODOSIN
     Indication: Product used for unknown indication
     Dosage: 4 MG, BID
     Route: 048
  2. PADCEV [Suspect]
     Active Substance: ENFORTUMAB VEDOTIN-EJFV
     Indication: Bladder cancer
     Route: 042

REACTIONS (5)
  - Febrile neutropenia [Fatal]
  - Toxic epidermal necrolysis [Fatal]
  - Bladder cancer [Fatal]
  - Nocturia [Unknown]
  - Haematuria [Unknown]
